FAERS Safety Report 7880238-1 (Version None)
Quarter: 2011Q4

REPORT INFORMATION
  Report Type: 
  Country: None (occurrence: None)
  Receive Date: 20111101
  Receipt Date: 20111031
  Transmission Date: 20120403
  Serious: Yes (Other)
  Sender: FDA-Public Use
  Company Number: JP-PFIZER INC-2011233215

PATIENT
  Age: 74 Year
  Sex: Male

DRUGS (6)
  1. LOSARTAN POTASSIUM [Concomitant]
     Dosage: UNK
  2. WARFARIN SODIUM [Interacting]
     Dosage: UNK
  3. ASPIRIN [Concomitant]
     Dosage: UNK
  4. ALLOPURINOL [Concomitant]
     Dosage: UNK
  5. LYRICA [Suspect]
     Dosage: 75 MG DAILY
     Route: 048
     Dates: start: 20110101
  6. LEVOTHYROXINE SODIUM [Concomitant]
     Dosage: UNK

REACTIONS (2)
  - DRUG INTERACTION [None]
  - INTERNATIONAL NORMALISED RATIO DECREASED [None]
